FAERS Safety Report 8553096-X (Version None)
Quarter: 2012Q3

REPORT INFORMATION
  Report Type: 
  Country: None (occurrence: None)
  Receive Date: 20120731
  Receipt Date: 20120720
  Transmission Date: 20120928
  Serious: Yes (Hospitalization)
  Sender: FDA-Public Use
  Company Number: ZA-NOVOPROD-355795

PATIENT
  Sex: Female
  Weight: 1.7 kg

DRUGS (6)
  1. PROTAPHANE FLEXPEN [Suspect]
     Indication: GESTATIONAL DIABETES
     Dosage: 24 IU, QD
     Route: 064
     Dates: start: 20111204
  2. PROTAPHANE FLEXPEN [Suspect]
     Dosage: 24 IU, QD
     Route: 064
     Dates: start: 20111204
  3. PROTAPHANE FLEXPEN [Suspect]
     Dosage: 40 IU, QD
     Route: 064
     Dates: end: 20120626
  4. NOVORAPID FLEXPEN [Suspect]
     Indication: GESTATIONAL DIABETES
     Dosage: 36 IU, QD
     Route: 064
     Dates: start: 20111204
  5. PROTAPHANE FLEXPEN [Suspect]
     Dosage: 40 IU, QD
     Route: 064
     Dates: end: 20120626
  6. NOVORAPID FLEXPEN [Suspect]
     Dosage: 38 IU, QD
     Route: 064
     Dates: end: 20120626

REACTIONS (3)
  - LOW BIRTH WEIGHT BABY [None]
  - PREMATURE BABY [None]
  - FOETAL EXPOSURE DURING PREGNANCY [None]
